FAERS Safety Report 5958196-6 (Version None)
Quarter: 2008Q4

REPORT INFORMATION
  Report Type: 
  Country: None (occurrence: None)
  Receive Date: 20081117
  Receipt Date: 20081117
  Transmission Date: 20090506
  Serious: Yes (Other)
  Sender: FDA-Public Use
  Company Number: None

PATIENT
  Age: 27 Year
  Sex: Female
  Weight: 99.7913 kg

DRUGS (1)
  1. ALDARA [Suspect]
     Indication: MOLLUSCUM CONTAGIOSUM
     Dosage: 1 PACKET DAILY TOP
     Route: 061

REACTIONS (5)
  - ABASIA [None]
  - IMPAIRED WORK ABILITY [None]
  - INFLAMMATION [None]
  - PAIN [None]
  - SWELLING [None]
